FAERS Safety Report 7967289-3 (Version None)
Quarter: 2011Q4

REPORT INFORMATION
  Report Type: 
  Country: None (occurrence: None)
  Receive Date: 20111122
  Receipt Date: 20110809
  Transmission Date: 20120403
  Serious: No
  Sender: FDA-Public Use
  Company Number: PHHY2011US61565

PATIENT
  Age: 57 Year
  Sex: Female

DRUGS (6)
  1. PERCOCET [Concomitant]
  2. GILENYA [Suspect]
     Dosage: 0.5 MG, QD, ORAL
     Route: 048
     Dates: start: 20110215, end: 20110802
  3. OXYBUTYNIN [Concomitant]
  4. FIORICET (BUTALBITAL, CAFFEINE, PARACETAMOL) TABLET [Concomitant]
  5. LORAZEPAM [Concomitant]
  6. NEXIUM [Concomitant]

REACTIONS (5)
  - BALANCE DISORDER [None]
  - ASPIRATION [None]
  - DYSPHAGIA [None]
  - WHITE BLOOD CELL COUNT INCREASED [None]
  - HYPOACUSIS [None]
